FAERS Safety Report 21579770 (Version 1)
Quarter: 2022Q4

REPORT INFORMATION
  Report Type: Spontaneous
  Country: US (occurrence: US)
  Receive Date: 20221110
  Receipt Date: 20221110
  Transmission Date: 20230112
  Serious: No
  Sender: FDA-Public Use
  Company Number: US-Millicent Holdings Ltd.-MILL20220354

PATIENT
  Age: 64 Year
  Sex: Female

DRUGS (2)
  1. INTRAROSA [Suspect]
     Active Substance: PRASTERONE
     Indication: Vulvovaginal dryness
     Dosage: ONE 6.5 MG
     Route: 067
     Dates: start: 20221017, end: 20221027
  2. INTRAROSA [Suspect]
     Active Substance: PRASTERONE
     Indication: Postmenopause
     Dosage: ONE 6.5 MG
     Route: 067

REACTIONS (4)
  - Underdose [Recovered/Resolved]
  - Poor quality product administered [Recovered/Resolved]
  - Off label use [Unknown]
  - Product physical issue [Recovered/Resolved]

NARRATIVE: CASE EVENT DATE: 20221017
